FAERS Safety Report 6128516-0 (Version None)
Quarter: 2009Q1

REPORT INFORMATION
  Report Type: 
  Country: None (occurrence: None)
  Receive Date: 20090323
  Receipt Date: 20090316
  Transmission Date: 20090719
  Serious: Yes (Death, Congenital Anomaly)
  Sender: FDA-Public Use
  Company Number: FR-JNJFOC-20090303792

PATIENT
  Sex: Female

DRUGS (5)
  1. NIZORAL [Suspect]
     Indication: DRUG EXPOSURE DURING PREGNANCY
  2. ACTIFED [Suspect]
     Indication: DRUG EXPOSURE DURING PREGNANCY
  3. ZYRTEC [Suspect]
     Indication: DRUG EXPOSURE DURING PREGNANCY
  4. ATARAX [Suspect]
     Indication: DRUG EXPOSURE DURING PREGNANCY
  5. ISOMERIDE [Suspect]
     Indication: DRUG EXPOSURE DURING PREGNANCY

REACTIONS (3)
  - CONGENITAL ANOMALY [None]
  - MATERNAL DRUGS AFFECTING FOETUS [None]
  - STILLBIRTH [None]
